FAERS Safety Report 7412455-9 (Version None)
Quarter: 2011Q2

REPORT INFORMATION
  Report Type: 
  Country: None (occurrence: None)
  Receive Date: 20110413
  Receipt Date: 20110411
  Transmission Date: 20111010
  Serious: Yes (Death, Hospitalization, Other)
  Sender: FDA-Public Use
  Company Number: PHHY2010MX48719

PATIENT
  Age: 95 Year
  Sex: Female

DRUGS (2)
  1. CAPTOPRIL [Concomitant]
  2. ACLASTA [Suspect]
     Indication: OSTEOPOROSIS
     Dosage: 5 MG/100 ML YEARLY
     Route: 042
     Dates: start: 20090615

REACTIONS (6)
  - RESPIRATORY FAILURE [None]
  - HYPOTHERMIA [None]
  - ARTHRALGIA [None]
  - PNEUMONIA [None]
  - FALL [None]
  - DEPRESSION [None]
